FAERS Safety Report 14635727 (Version 3)
Quarter: 2018Q4

REPORT INFORMATION
  Report Type: Spontaneous
  Country: US (occurrence: US)
  Receive Date: 20180314
  Receipt Date: 20181002
  Transmission Date: 20190204
  Serious: Yes (Other)
  Sender: FDA-Public Use
  Company Number: US-PFIZER INC-2018100611

PATIENT
  Age: 33 Year
  Sex: Female

DRUGS (1)
  1. AMPICILLIN SODIUM. [Suspect]
     Active Substance: AMPICILLIN SODIUM
     Indication: URINARY TRACT INFECTION
     Dosage: UNK (ONE WEEK COURSE)

REACTIONS (2)
  - Enterocolitis haemorrhagic [Unknown]
  - Klebsiella test positive [Unknown]
